FAERS Safety Report 15353609 (Version 1)
Quarter: 2018Q3

REPORT INFORMATION
  Report Type: Spontaneous
  Country: GR (occurrence: GR)
  Receive Date: 20180905
  Receipt Date: 20180905
  Transmission Date: 20181010
  Serious: Yes (Other)
  Sender: FDA-Public Use
  Company Number: GR-PFIZER INC-2018359034

PATIENT
  Age: 81 Year

DRUGS (1)
  1. AMIODARONE HCL [Suspect]
     Active Substance: AMIODARONE HYDROCHLORIDE
     Dosage: UNK
     Route: 065

REACTIONS (10)
  - Productive cough [Recovered/Resolved]
  - Respiratory failure [Recovered/Resolved]
  - Pyrexia [Recovered/Resolved]
  - Lung disorder [Recovered/Resolved]
  - Pleural effusion [Recovered/Resolved]
  - Dyspnoea [Recovered/Resolved]
  - Eosinophilia [Recovered/Resolved]
  - Lung infiltration [Recovered/Resolved]
  - Pulmonary toxicity [Recovered/Resolved]
  - Off label use [Recovered/Resolved]
